FAERS Safety Report 6102961-1 (Version None)
Quarter: 2009Q1

REPORT INFORMATION
  Report Type: 
  Country: None (occurrence: None)
  Receive Date: 20090305
  Receipt Date: 20090219
  Transmission Date: 20090719
  Serious: Yes (Hospitalization)
  Sender: FDA-Public Use
  Company Number: PHHY2009BR06129

PATIENT
  Age: 76 Year
  Sex: Female

DRUGS (1)
  1. DIOVAN AMLO FIX [Suspect]
     Dosage: 160 MG VALSARTAN/5 MG AMLODIPINE BESYLATE

REACTIONS (2)
  - OEDEMA PERIPHERAL [None]
  - URINE OUTPUT DECREASED [None]
